FAERS Safety Report 10443494 (Version 1)
Quarter: 2014Q3

REPORT INFORMATION
  Report Type: Spontaneous
  Country: US (occurrence: US)
  Receive Date: 20140910
  Receipt Date: 20140910
  Transmission Date: 20150326
  Serious: No
  Sender: FDA-Public Use
  Company Number: US-BIOGENIDEC-2014BI091054

PATIENT
  Sex: Male

DRUGS (1)
  1. AVONEX [Suspect]
     Active Substance: INTERFERON BETA-1A
     Indication: MULTIPLE SCLEROSIS
     Route: 030

REACTIONS (6)
  - Hypoaesthesia [Unknown]
  - Drug ineffective [Unknown]
  - Sluggishness [Recovered/Resolved]
  - Headache [Unknown]
  - Nausea [Unknown]
  - Drug intolerance [Unknown]
